FAERS Safety Report 7112376-5 (Version None)
Quarter: 2010Q4

REPORT INFORMATION
  Report Type: 
  Country: None (occurrence: None)
  Receive Date: 20101119
  Receipt Date: 20100927
  Transmission Date: 20110411
  Serious: No
  Sender: FDA-Public Use
  Company Number: A0883515A

PATIENT
  Age: 83 Year
  Sex: Male

DRUGS (9)
  1. AVODART [Suspect]
     Indication: BENIGN PROSTATIC HYPERPLASIA
     Dosage: 5MG PER DAY
     Route: 048
     Dates: end: 20100101
  2. UNSPECIFIED MEDICATION [Suspect]
     Indication: PRODUCT USED FOR UNKNOWN INDICATION
     Dates: end: 20100101
  3. ACTOS [Concomitant]
  4. GLIPIZIDE [Concomitant]
  5. PREVACID [Concomitant]
  6. LEVOTHYROXINE SODIUM [Concomitant]
  7. UNSPECIFIED MEDICATION [Concomitant]
  8. UROXATRAL [Concomitant]
  9. ASPIRIN [Concomitant]

REACTIONS (4)
  - CONDITION AGGRAVATED [None]
  - DRUG INTERACTION [None]
  - IRRITABLE BOWEL SYNDROME [None]
  - TRANSIENT ISCHAEMIC ATTACK [None]
